FAERS Safety Report 6087932-6 (Version None)
Quarter: 2009Q1

REPORT INFORMATION
  Report Type: 
  Country: None (occurrence: None)
  Receive Date: 20090218
  Receipt Date: 20090218
  Transmission Date: 20090719
  Serious: Yes (Life-Threatening, Hospitalization)
  Sender: FDA-Public Use
  Company Number: None

PATIENT
  Age: 78 Year
  Sex: Female
  Weight: 154 kg

DRUGS (2)
  1. RITUXAN 100 MG -X 3- [Suspect]
     Indication: LYMPHOMA
     Dosage: 750 MG X 1 IV DRIP
     Route: 041
     Dates: start: 20090216, end: 20090216
  2. RITUXAN 500 MG - X 1- [Suspect]

REACTIONS (3)
  - CARDIAC ARREST [None]
  - CARDIOVASCULAR DISORDER [None]
  - CHEST PAIN [None]
